FAERS Safety Report 13502632 (Version 1)
Quarter: 2017Q2

REPORT INFORMATION
  Report Type: Spontaneous
  Country: US (occurrence: US)
  Receive Date: 20170501
  Receipt Date: 20170501
  Transmission Date: 20170830
  Serious: Yes (Other)
  Sender: FDA-Public Use
  Company Number: None

PATIENT
  Age: 63 Year
  Sex: Female
  Weight: 52.65 kg

DRUGS (1)
  1. SENSODYNE [Suspect]
     Active Substance: POTASSIUM NITRATE\SODIUM FLUORIDE
     Indication: DENTAL DISORDER PROPHYLAXIS
     Dosage: ?          QUANTITY:1 TEASPOON(S);OTHER ROUTE:CLEAN TEETH?
     Dates: start: 20170412, end: 20170430

REACTIONS (4)
  - Nausea [None]
  - Memory impairment [None]
  - Palpitations [None]
  - Diarrhoea [None]

NARRATIVE: CASE EVENT DATE: 20170427
